FAERS Safety Report 14296459 (Version 1)
Quarter: 2017Q4

REPORT INFORMATION
  Report Type: Spontaneous
  Country: US (occurrence: US)
  Receive Date: 20171218
  Receipt Date: 20171218
  Transmission Date: 20180321
  Serious: No
  Sender: FDA-Public Use
  Company Number: US-SUNOVION-2017SUN005213

PATIENT
  Age: 51 Year
  Sex: Female
  Weight: 113.83 kg

DRUGS (1)
  1. LATUDA [Suspect]
     Active Substance: LURASIDONE HYDROCHLORIDE
     Indication: BIPOLAR DISORDER
     Dosage: 40 MG, QD
     Route: 048
     Dates: start: 201711

REACTIONS (4)
  - Crying [Unknown]
  - Irritability [Unknown]
  - Logorrhoea [Unknown]
  - Euphoric mood [Unknown]
